FAERS Safety Report 16337510 (Version 1)
Quarter: 2019Q2

REPORT INFORMATION
  Report Type: Spontaneous
  Country: IT (occurrence: IT)
  Receive Date: 20190521
  Receipt Date: 20190521
  Transmission Date: 20190711
  Serious: Yes (Life-Threatening)
  Sender: FDA-Public Use
  Company Number: IT-MYLANLABS-2019M1031276

PATIENT
  Age: 81 Year
  Sex: Female

DRUGS (7)
  1. CLONAZEPAM. [Concomitant]
     Active Substance: CLONAZEPAM
     Dosage: UNK
  2. TIOTROPIUM BROMIDE [Concomitant]
     Active Substance: TIOTROPIUM BROMIDE
     Dosage: UNK
  3. SALMETEROL [Concomitant]
     Active Substance: SALMETEROL
     Dosage: UNK
  4. DONEPEZIL. [Concomitant]
     Active Substance: DONEPEZIL
  5. RIVASTIGMINE. [Suspect]
     Active Substance: RIVASTIGMINE
     Indication: PARKINSONISM
     Dosage: 4.6 MILLIGRAM, QD
     Route: 062
     Dates: start: 20180101, end: 20180601
  6. VENLAFAXINE [Concomitant]
     Active Substance: VENLAFAXINE HYDROCHLORIDE
     Dosage: UNK
  7. DOPAMINE [Concomitant]
     Active Substance: DOPAMINE\DOPAMINE HYDROCHLORIDE
     Dosage: UNK

REACTIONS (4)
  - Decreased appetite [Recovered/Resolved]
  - Depression [Recovered/Resolved]
  - Suicidal ideation [Recovered/Resolved]
  - Hallucination, visual [Recovered/Resolved]

NARRATIVE: CASE EVENT DATE: 20180601
